FAERS Safety Report 23149882 (Version 3)
Quarter: 2024Q1

REPORT INFORMATION
  Report Type: Spontaneous
  Country: US (occurrence: US)
  Receive Date: 20231106
  Receipt Date: 20240125
  Transmission Date: 20240410
  Serious: Yes (Other)
  Sender: FDA-Public Use
  Company Number: US-BRISTOL-MYERS SQUIBB COMPANY-2023-157341

PATIENT
  Age: 62 Year
  Sex: Male

DRUGS (2)
  1. REVLIMID [Suspect]
     Active Substance: LENALIDOMIDE
     Indication: Diffuse large B-cell lymphoma
     Dosage: FREQUENCY: DAILY
     Route: 048
     Dates: start: 202307, end: 202310
  2. REVLIMID [Suspect]
     Active Substance: LENALIDOMIDE
     Dosage: ONCE DAILY
     Route: 048
     Dates: start: 20230706

REACTIONS (11)
  - Rash [Recovered/Resolved]
  - Off label use [Unknown]
  - Catheter site haemorrhage [Unknown]
  - Catheter site infection [Unknown]
  - Pain [Unknown]
  - Musculoskeletal stiffness [Unknown]
  - Gait inability [Unknown]
  - Chills [Unknown]
  - Pyrexia [Unknown]
  - Confusional state [Unknown]
  - Infection [Unknown]

NARRATIVE: CASE EVENT DATE: 20230101
